FAERS Safety Report 5621835-3 (Version None)
Quarter: 2008Q1

REPORT INFORMATION
  Report Type: 
  Country: None (occurrence: None)
  Receive Date: 20080206
  Receipt Date: 20080125
  Transmission Date: 20080703
  Serious: Yes (Other)
  Sender: FDA-Public Use
  Company Number: 2008AP000283

PATIENT
  Age: 22 Year
  Sex: Female

DRUGS (10)
  1. PAROXETINE HCL [Suspect]
     Indication: DEPRESSION
     Dosage: 30 MG; PO; 50 MG; PO; 30 MG; PO; 40 MG; PO
     Route: 048
     Dates: start: 20020904, end: 20021022
  2. PAROXETINE HCL [Suspect]
     Indication: DEPRESSION
     Dosage: 30 MG; PO; 50 MG; PO; 30 MG; PO; 40 MG; PO
     Route: 048
     Dates: start: 20020228
  3. PAROXETINE HCL [Suspect]
     Indication: DEPRESSION
     Dosage: 30 MG; PO; 50 MG; PO; 30 MG; PO; 40 MG; PO
     Route: 048
     Dates: start: 20030524
  4. PAROXETINE HCL [Suspect]
     Indication: DEPRESSION
     Dosage: 30 MG; PO; 50 MG; PO; 30 MG; PO; 40 MG; PO
     Route: 048
     Dates: start: 20030612
  5. CITALOPRAM HYDROBROMIDE [Concomitant]
  6. DIAZEPAM [Concomitant]
  7. VENLAFAXINE HCL [Concomitant]
  8. DOSULEPIN HYDROCHLORIDE (DOSULEPIN HYDROCHLORIDE) [Concomitant]
  9. FLUOXETINE HCL [Concomitant]
  10. MIRTAZAPINE [Concomitant]

REACTIONS (2)
  - LABYRINTHITIS [None]
  - WITHDRAWAL SYNDROME [None]
